FAERS Safety Report 5395181-X (Version None)
Quarter: 2007Q3

REPORT INFORMATION
  Report Type: 
  Country: None (occurrence: None)
  Receive Date: 20070724
  Receipt Date: 20070710
  Transmission Date: 20080115
  Serious: Yes (Hospitalization)
  Sender: FDA-Public Use
  Company Number: US-ROCHE-506669

PATIENT
  Age: 62 Year
  Sex: Female
  Weight: 54 kg

DRUGS (2)
  1. XELODA [Suspect]
     Indication: DRUG USE FOR UNKNOWN INDICATION
     Dosage: THERAPY REPORTED FOR 14 DAYS.
     Route: 065
     Dates: start: 20070525, end: 20070612
  2. OXALIPLATIN [Suspect]
     Indication: METASTASES TO SMALL INTESTINE
     Route: 042
     Dates: start: 20070509

REACTIONS (3)
  - DIARRHOEA [None]
  - HYPOCALCAEMIA [None]
  - HYPOPHOSPHATAEMIA [None]
